FAERS Safety Report 24936706 (Version 1)
Quarter: 2025Q1

REPORT INFORMATION
  Report Type: Spontaneous
  Country: US (occurrence: US)
  Receive Date: 20250206
  Receipt Date: 20250206
  Transmission Date: 20250408
  Serious: Yes (Other)
  Sender: OTSUKA
  Company Number: US-OTSUKA-2025_001862

PATIENT
  Age: 22 Year
  Sex: Male

DRUGS (1)
  1. ABILIFY ASIMTUFII [Suspect]
     Active Substance: ARIPIPRAZOLE
     Indication: Schizophrenia
     Route: 065
     Dates: start: 202408

REACTIONS (4)
  - Weight increased [Unknown]
  - Gaming disorder [Unknown]
  - Exercise lack of [Unknown]
  - Substance use [Unknown]
